FAERS Safety Report 21943608 (Version 2)
Quarter: 2023Q2

REPORT INFORMATION
  Report Type: Spontaneous
  Country: US (occurrence: US)
  Receive Date: 20230202
  Receipt Date: 20230411
  Transmission Date: 20230721
  Serious: No
  Sender: FDA-Public Use
  Company Number: US-ABBVIE-4291686

PATIENT
  Age: 76 Year
  Sex: Female
  Weight: 63.5 kg

DRUGS (4)
  1. CREON [Suspect]
     Active Substance: PANCRELIPASE AMYLASE\PANCRELIPASE LIPASE\PANCRELIPASE PROTEASE
     Indication: Stool analysis
     Dosage: FREQUENCY OF CREON: 3,1,2,2
     Route: 048
     Dates: start: 202209
  2. REPATHA [Concomitant]
     Active Substance: EVOLOCUMAB
     Indication: Blood cholesterol
     Dates: start: 2017
  3. CYANOCOBALAMIN [Concomitant]
     Active Substance: CYANOCOBALAMIN
     Indication: Product used for unknown indication
  4. LISINOPRIL [Concomitant]
     Active Substance: LISINOPRIL
     Indication: Blood pressure measurement
     Dosage: 1
     Route: 048
     Dates: start: 2016

REACTIONS (6)
  - Fatigue [Recovering/Resolving]
  - Diarrhoea [Unknown]
  - Hypoglycaemia [Unknown]
  - Gait inability [Unknown]
  - Tremor [Unknown]
  - Brain fog [Recovering/Resolving]

NARRATIVE: CASE EVENT DATE: 20220703
